FAERS Safety Report 8141911-3 (Version None)
Quarter: 2012Q1

REPORT INFORMATION
  Report Type: 
  Country: None (occurrence: None)
  Receive Date: 20120216
  Receipt Date: 20120207
  Transmission Date: 20120608
  Serious: Yes (Death, Hospitalization, Disabling, Other)
  Sender: FDA-Public Use
  Company Number: US-GLAXOSMITHKLINE-A0962706A

PATIENT
  Age: 59 Year
  Sex: Female
  Weight: 50.5 kg

DRUGS (11)
  1. VOTRIENT [Suspect]
     Indication: RENAL CELL CARCINOMA
     Dosage: 800MG PER DAY
     Route: 048
     Dates: start: 20111012
  2. SIMVASTATIN [Concomitant]
     Dosage: 20MG PER DAY
     Route: 048
  3. NORCO [Concomitant]
     Route: 048
  4. XGEVA [Concomitant]
     Dosage: 120MG MONTHLY
     Route: 058
  5. METOPROLOL TARTRATE [Concomitant]
     Dosage: 20MG TWICE PER DAY
     Route: 048
  6. OXYCONTIN [Concomitant]
     Dosage: 20MG TWICE PER DAY
     Route: 048
  7. XANAX [Concomitant]
     Dosage: .5MG SEE DOSAGE TEXT
     Route: 048
  8. ZANTAC [Concomitant]
     Dosage: 150MG TWICE PER DAY
     Route: 048
  9. PREDNISONE [Concomitant]
     Dosage: 20MG PER DAY
  10. OXYGEN [Concomitant]
  11. SYNTHROID [Concomitant]
     Dosage: .25MG PER DAY
     Route: 048

REACTIONS (8)
  - MENTAL IMPAIRMENT [None]
  - HYPOVOLAEMIA [None]
  - APNOEIC ATTACK [None]
  - RENAL FAILURE ACUTE [None]
  - GENERAL PHYSICAL HEALTH DETERIORATION [None]
  - HEMIPLEGIA [None]
  - ACUTE PRERENAL FAILURE [None]
  - ISCHAEMIC STROKE [None]
